FAERS Safety Report 11919053 (Version 1)
Quarter: 2016Q1

REPORT INFORMATION
  Report Type: Spontaneous
  Country: JP (occurrence: JP)
  Receive Date: 20160115
  Receipt Date: 20160115
  Transmission Date: 20160526
  Serious: Yes (Other)
  Sender: FDA-Public Use
  Company Number: JP-PAR PHARMACEUTICAL COMPANIES-2016SCPR015089

PATIENT

DRUGS (6)
  1. EPHEDRINE. [Suspect]
     Active Substance: EPHEDRINE
     Indication: BLOOD PRESSURE DECREASED
     Dosage: 8 MG, UNKNOWN
     Route: 042
  2. BUPIVACAINE [Suspect]
     Active Substance: BUPIVACAINE
     Indication: SPINAL ANAESTHESIA
     Dosage: 11 MG, UNKNOWN
     Route: 037
  3. ROPIVACAINE [Suspect]
     Active Substance: ROPIVACAINE
     Indication: EPIDURAL ANAESTHESIA
     Dosage: 5 ML/H, UNKNOWN
     Route: 008
  4. METHYLERGOMETRINE MALEATE [Suspect]
     Active Substance: METHYLERGONOVINE MALEATE
     Indication: UTERINE ATONY
     Dosage: 0.2 MG, OVER 10 MINUTES
     Route: 042
  5. METHYLERGOMETRINE MALEATE [Suspect]
     Active Substance: METHYLERGONOVINE MALEATE
     Dosage: 0.4 MG, 10 HOURS AFTER THE SURGERY
     Route: 042
  6. PITOCIN [Suspect]
     Active Substance: OXYTOCIN
     Indication: UTERINE ATONY
     Dosage: 5 UNITS MIXED IN 500 ML CRYSTALLOID SOLUTION, OVER 30 MINUTES
     Route: 042

REACTIONS (3)
  - Autonomic nervous system imbalance [Unknown]
  - Atrioventricular block first degree [Unknown]
  - Ventricular tachycardia [Recovered/Resolved]
